FAERS Safety Report 10261117 (Version 4)
Quarter: 2015Q2

REPORT INFORMATION
  Report Type: Spontaneous
  Country: US (occurrence: US)
  Receive Date: 20140626
  Receipt Date: 20150624
  Transmission Date: 20150821
  Serious: Yes (Hospitalization)
  Sender: FDA-Public Use
  Company Number: US-JNJFOC-20140616733

PATIENT
  Age: 57 Year
  Sex: Female
  Weight: 61.3 kg

DRUGS (2)
  1. IMBRUVICA [Suspect]
     Active Substance: IBRUTINIB
     Indication: MANTLE CELL LYMPHOMA
     Route: 048
     Dates: start: 20140321, end: 20140605
  2. POTASSIUM CHLORIDE. [Concomitant]
     Active Substance: POTASSIUM CHLORIDE

REACTIONS (4)
  - Herpes zoster [Recovered/Resolved]
  - Disease progression [Not Recovered/Not Resolved]
  - Nodule [Unknown]
  - Contusion [Unknown]

NARRATIVE: CASE EVENT DATE: 20140323
